FAERS Safety Report 6358252-7 (Version None)
Quarter: 2009Q3

REPORT INFORMATION
  Report Type: 
  Country: None (occurrence: None)
  Receive Date: 20090911
  Receipt Date: 20090831
  Transmission Date: 20100115
  Serious: Yes (Other)
  Sender: FDA-Public Use
  Company Number: 2009AP001082

PATIENT
  Age: 39 Year
  Sex: Female

DRUGS (3)
  1. TOPIRAMATE [Suspect]
     Indication: GRAND MAL CONVULSION
  2. CARBAMAZEPINE [Suspect]
     Indication: GRAND MAL CONVULSION
  3. VALPROIC ACID [Concomitant]

REACTIONS (9)
  - ANOSOGNOSIA [None]
  - COGNITIVE DISORDER [None]
  - DELUSION [None]
  - DEPRESSION [None]
  - HALLUCINATION, AUDITORY [None]
  - INITIAL INSOMNIA [None]
  - PSYCHOTIC DISORDER [None]
  - STATUS EPILEPTICUS [None]
  - WITHDRAWAL SYNDROME [None]
